FAERS Safety Report 5329487-7 (Version None)
Quarter: 2007Q2

REPORT INFORMATION
  Report Type: 
  Country: None (occurrence: None)
  Receive Date: 20070221
  Receipt Date: 20060504
  Transmission Date: 20071010
  Serious: Yes (Other)
  Sender: FDA-Public Use
  Company Number: BDI-008123

PATIENT
  Sex: Female

DRUGS (1)
  1. IOPAMIDOL [Suspect]
     Indication: COMPUTERISED TOMOGRAM
     Dosage: 50 ML ONCE IV
     Route: 042
     Dates: start: 20060411, end: 20060411

REACTIONS (1)
  - HYPERSENSITIVITY [None]
